FAERS Safety Report 24346722 (Version 1)
Quarter: 2024Q3

REPORT INFORMATION
  Report Type: Spontaneous
  Country: US (occurrence: US)
  Receive Date: 20240921
  Receipt Date: 20240921
  Transmission Date: 20241016
  Serious: No
  Sender: CIPLA
  Company Number: US-CIPLA LTD.-2024US04397

PATIENT

DRUGS (1)
  1. ALENDRONATE [Suspect]
     Active Substance: ALENDRONATE SODIUM
     Indication: Product used for unknown indication
     Dosage: UNK (70 MG UNIT OF USE BLISTER PACKAGE OF 4)
     Route: 065

REACTIONS (1)
  - Abdominal pain upper [Not Recovered/Not Resolved]
